FAERS Safety Report 4316138-3 (Version None)
Quarter: 2004Q1

REPORT INFORMATION
  Report Type: 
  Country: None (occurrence: None)
  Receive Date: 20040312
  Receipt Date: 20031120
  Transmission Date: 20041129
  Serious: Yes (Death)
  Sender: FDA-Public Use
  Company Number: US-BRISTOL-MYERS SQUIBB COMPANY-12444154

PATIENT
  Age: 79 Year
  Sex: Female

DRUGS (15)
  1. CARDIOLITE [Suspect]
     Indication: CHEST PAIN
     Route: 042
     Dates: start: 20031120, end: 20031120
  2. PREVACID [Concomitant]
  3. TENORMIN [Concomitant]
  4. ASPIRIN [Concomitant]
  5. PLAVIX [Concomitant]
  6. FOSAMAX [Concomitant]
  7. CATAPRES [Concomitant]
  8. PAXIL [Concomitant]
  9. DETROL LA [Concomitant]
  10. VIOXX [Concomitant]
  11. LORTAB [Concomitant]
  12. COUMADIN [Concomitant]
  13. ZOCOR [Concomitant]
  14. ALTACE [Concomitant]
  15. DIGOXIN [Concomitant]

REACTIONS (1)
  - SUDDEN DEATH [None]
